FAERS Safety Report 25984070 (Version 2)
Quarter: 2025Q4

REPORT INFORMATION
  Report Type: Report from Study
  Country: US (occurrence: US)
  Receive Date: 20251031
  Receipt Date: 20251107
  Transmission Date: 20260117
  Serious: Yes (Other)
  Sender: ALEXION PHARMACEUTICALS
  Company Number: US-AstraZeneca-CH-00979437A

PATIENT
  Age: 17 Year
  Sex: Female
  Weight: 39 kg

DRUGS (7)
  1. SELUMETINIB [Suspect]
     Active Substance: SELUMETINIB
     Indication: Congenital cardiovascular anomaly
     Dosage: 30 MILLIGRAM, BID
  2. Omega 3 + vitamin d [Concomitant]
     Dosage: UNK
     Route: 065
  3. ACETAMINOPHEN [Concomitant]
     Active Substance: ACETAMINOPHEN
     Dosage: UNK
  4. Mirabegrona [Concomitant]
     Dosage: UNK
     Route: 065
  5. BACLOFEN [Concomitant]
     Active Substance: BACLOFEN
     Dosage: UNK
     Route: 065
  6. OXYBUTYNIN CHLORIDE [Concomitant]
     Active Substance: OXYBUTYNIN CHLORIDE
     Dosage: UNK
     Route: 065
  7. GABAPENTIN [Concomitant]
     Active Substance: GABAPENTIN
     Dosage: UNK
     Route: 065

REACTIONS (1)
  - Osteopenia [Unknown]
